FAERS Safety Report 12815470 (Version 1)
Quarter: 2016Q4

REPORT INFORMATION
  Report Type: Report from Study
  Country: US (occurrence: US)
  Receive Date: 20161005
  Receipt Date: 20161005
  Transmission Date: 20170207
  Serious: Yes (Other)
  Sender: FDA-Public Use
  Company Number: PHEH2013US002327

PATIENT
  Age: 58 Year
  Sex: Male
  Weight: 54.42 kg

DRUGS (1)
  1. GLEEVEC [Suspect]
     Active Substance: IMATINIB MESYLATE
     Indication: GASTROINTESTINAL STROMAL TUMOUR
     Dosage: 400 MG, QD EVERY DAY
     Route: 048
     Dates: start: 20100101

REACTIONS (2)
  - Constipation [Unknown]
  - Neoplasm [Unknown]

NARRATIVE: CASE EVENT DATE: 20100101
